FAERS Safety Report 7277130-2 (Version None)
Quarter: 2011Q1

REPORT INFORMATION
  Report Type: 
  Country: None (occurrence: None)
  Receive Date: 20110202
  Receipt Date: 20110202
  Transmission Date: 20110831
  Serious: Yes (Other)
  Sender: FDA-Public Use
  Company Number: None

PATIENT
  Age: 60 Year
  Sex: Male
  Weight: 94.8018 kg

DRUGS (7)
  1. INDOCIN [Concomitant]
  2. AMLODIPINE [Concomitant]
  3. ATIVAN [Concomitant]
  4. RESTORIL [Concomitant]
  5. CYMBALTA [Concomitant]
  6. SEROQUEL [Suspect]
     Indication: BIPOLAR I DISORDER
     Dosage: 75 MG BEDTIME ORAL
     Route: 048
     Dates: start: 20041112, end: 20100901
  7. PROTONIX [Concomitant]

REACTIONS (2)
  - PAIN [None]
  - MUSCLE TWITCHING [None]
